FAERS Safety Report 12265448 (Version 2)
Quarter: 2016Q2

REPORT INFORMATION
  Report Type: Report from Study
  Country: FR (occurrence: FR)
  Receive Date: 20160413
  Receipt Date: 20160606
  Transmission Date: 20160815
  Serious: Yes (Other)
  Sender: FDA-Public Use
  Company Number: FR-PFIZER INC-2016097324

PATIENT
  Age: 58 Year
  Sex: Female
  Weight: 81 kg

DRUGS (1)
  1. PALBOCICLIB [Suspect]
     Active Substance: PALBOCICLIB
     Indication: BREAST CANCER METASTATIC
     Dosage: 125 MG, DAILY (3 WEEKS ON/ ONE WEEK OFF)
     Route: 048
     Dates: start: 20160107

REACTIONS (9)
  - Neutrophil count decreased [Unknown]
  - Alanine aminotransferase abnormal [Unknown]
  - Fatigue [Not Recovered/Not Resolved]
  - Muscle spasms [Recovering/Resolving]
  - Neutropenia [Unknown]
  - Platelet count decreased [Unknown]
  - Diarrhoea [Recovering/Resolving]
  - Hepatocellular injury [Unknown]
  - Aspartate aminotransferase abnormal [Unknown]

NARRATIVE: CASE EVENT DATE: 20160205
